FAERS Safety Report 17077209 (Version 3)
Quarter: 2022Q3

REPORT INFORMATION
  Report Type: Report from Study
  Country: JP (occurrence: JP)
  Receive Date: 20191126
  Receipt Date: 20220713
  Transmission Date: 20221027
  Serious: Yes (Hospitalization, Other)
  Sender: FDA-Public Use
  Company Number: JP-GLAXOSMITHKLINE-JP2019JPN205896

PATIENT

DRUGS (18)
  1. BELIMUMAB [Suspect]
     Active Substance: BELIMUMAB
     Indication: Systemic lupus erythematosus
     Dosage: 200 MG, WE
     Route: 058
     Dates: start: 20181019, end: 20190411
  2. BELIMUMAB [Suspect]
     Active Substance: BELIMUMAB
     Indication: Systemic lupus erythematosus rash
  3. PREDONINE [Concomitant]
     Active Substance: PREDNISOLONE
     Indication: Systemic lupus erythematosus
     Dosage: 5 MG, 1D
     Dates: start: 20181019
  4. LOMERIZINE HYDROCHLORIDE [Concomitant]
     Active Substance: LOMERIZINE HYDROCHLORIDE
     Indication: Migraine prophylaxis
     Dosage: UNK
  5. BAYASPIRIN TABLETS [Concomitant]
     Indication: Thrombosis prophylaxis
     Dosage: UNK
  6. ALFAROL CAPSULE [Concomitant]
     Indication: Osteoporosis prophylaxis
     Dosage: UNK
  7. LOXOPROFEN SODIUM DIHYDRATE [Concomitant]
     Active Substance: LOXOPROFEN SODIUM DIHYDRATE
     Dosage: UNK
  8. PARIET TABLET [Concomitant]
     Indication: Prophylaxis against gastrointestinal ulcer
     Dosage: UNK
  9. HYALEIN MINI OPHTHALMIC SOLUTION [Concomitant]
     Dosage: UNK
  10. HIRUDOID SOFT OINTMENT [Concomitant]
     Dosage: UNK
  11. ETIZOLAM [Concomitant]
     Active Substance: ETIZOLAM
     Dosage: UNK
  12. HYPEN [Concomitant]
     Dosage: UNK
  13. HIRUDOID LOTION [Concomitant]
     Dosage: UNK
  14. MYSLEE TABLETS [Concomitant]
     Dosage: UNK
  15. EDIROL CAPSULE [Concomitant]
     Indication: Osteoporosis prophylaxis
     Dosage: UNK
  16. ASPARA-CA TABLETS [Concomitant]
     Indication: Osteoporosis prophylaxis
     Dosage: UNK
  17. REBAMIPIDE [Concomitant]
     Active Substance: REBAMIPIDE
     Indication: Prophylaxis against gastrointestinal ulcer
     Dosage: UNK
  18. VITAMEDIN COMBINATION CAPSULES [Concomitant]
     Dosage: UNK

REACTIONS (1)
  - Nephritis bacterial [Recovered/Resolved]

NARRATIVE: CASE EVENT DATE: 20190410
